FAERS Safety Report 17803534 (Version 10)
Quarter: 2021Q1

REPORT INFORMATION
  Report Type: Spontaneous
  Country: AU (occurrence: AU)
  Receive Date: 20200519
  Receipt Date: 20210329
  Transmission Date: 20210419
  Serious: Yes (Other)
  Sender: FDA-Public Use
  Company Number: AU-PFIZER INC-2020191005

PATIENT
  Age: 55 Year
  Sex: Female

DRUGS (4)
  1. CLOPINE [Suspect]
     Active Substance: CLOZAPINE
     Dosage: 275 MG
     Dates: end: 20200513
  2. CLOPINE [Suspect]
     Active Substance: CLOZAPINE
     Dosage: 275 MG
     Dates: start: 20200514, end: 20210318
  3. PALBOCICLIB [Suspect]
     Active Substance: PALBOCICLIB
     Indication: BREAST CANCER FEMALE
     Dosage: UNK
  4. CLOPINE [Suspect]
     Active Substance: CLOZAPINE
     Dosage: UNK
     Dates: start: 20100624

REACTIONS (5)
  - Off label use [Unknown]
  - Neutropenia [Unknown]
  - Breast cancer [Unknown]
  - Pyrexia [Unknown]
  - Intentional product use issue [Unknown]
